FAERS Safety Report 21015850 (Version 1)
Quarter: 2022Q2

REPORT INFORMATION
  Report Type: Spontaneous
  Country: FR (occurrence: FR)
  Receive Date: 20220628
  Receipt Date: 20220628
  Transmission Date: 20220720
  Serious: Yes (Hospitalization)
  Sender: FDA-Public Use
  Company Number: None

PATIENT
  Age: 46 Year
  Sex: Female
  Weight: 142.6 kg

DRUGS (9)
  1. SPIRONOLACTONE [Suspect]
     Active Substance: SPIRONOLACTONE
     Indication: Diabetes mellitus
     Route: 048
     Dates: start: 20220311, end: 20220316
  2. DAPAGLIFLOZIN [Suspect]
     Active Substance: DAPAGLIFLOZIN
     Indication: Diabetes mellitus
     Dosage: STRENGTH: 10 MG
     Dates: start: 20220305, end: 20220317
  3. SACUBITRIL\VALSARTAN [Suspect]
     Active Substance: SACUBITRIL\VALSARTAN
     Indication: Product used for unknown indication
     Dosage: STRENGTH; 24 MG/26 MG, 2/D
     Route: 048
     Dates: start: 20220202, end: 20220316
  4. KETOPROFEN [Suspect]
     Active Substance: KETOPROFEN
     Indication: Pain
     Route: 042
     Dates: start: 20220310, end: 20220311
  5. OXYCODONE HYDROCHLORIDE [Suspect]
     Active Substance: OXYCODONE HYDROCHLORIDE
     Indication: Pain
     Dosage: STRENGTH: 5MG
     Route: 048
     Dates: start: 20220313, end: 20220317
  6. PANTOPRAZOLE [Concomitant]
     Active Substance: PANTOPRAZOLE
     Route: 048
  7. BISOPROLOL [Concomitant]
     Active Substance: BISOPROLOL
     Route: 048
     Dates: start: 20220218
  8. INNOHEP [Concomitant]
     Active Substance: TINZAPARIN SODIUM
     Dosage: STRENGTH: 18,000 IU ANTI-XA/ 0.9ML, SOLUTION FOR INJECTION (S.C.) IN PRE-FILLED?SYRINGE
     Route: 058
     Dates: start: 20220311, end: 20220321
  9. CORDARONE [Concomitant]
     Active Substance: AMIODARONE HYDROCHLORIDE
     Dosage: STRENGTH: 200 MG, SCORED TABLET
     Route: 048
     Dates: start: 20220228

REACTIONS (2)
  - Acute kidney injury [Recovering/Resolving]
  - Acute generalised exanthematous pustulosis [Recovering/Resolving]

NARRATIVE: CASE EVENT DATE: 20220316
